FAERS Safety Report 21357958 (Version 27)
Quarter: 2025Q4

REPORT INFORMATION
  Report Type: Spontaneous
  Country: CA (occurrence: CA)
  Receive Date: 20220921
  Receipt Date: 20251109
  Transmission Date: 20260118
  Serious: Yes (Hospitalization, Other)
  Sender: CELLTRION
  Company Number: CA-CELLTRION INC.-2022CA014036

PATIENT

DRUGS (44)
  1. INFLIXIMAB [Suspect]
     Active Substance: INFLIXIMAB
     Indication: Crohn^s disease
     Dosage: 300 MILLIGRAM
     Route: 042
  2. INFLIXIMAB [Suspect]
     Active Substance: INFLIXIMAB
     Dosage: 300 MILLIGRAM
     Route: 042
  3. INFLIXIMAB [Suspect]
     Active Substance: INFLIXIMAB
     Dosage: 200 MILLIGRAM
     Route: 042
  4. INFLIXIMAB [Suspect]
     Active Substance: INFLIXIMAB
     Dosage: 200 MILLIGRAM
     Route: 042
  5. INFLIXIMAB [Suspect]
     Active Substance: INFLIXIMAB
     Dosage: 200 MILLIGRAM
     Route: 042
  6. INFLIXIMAB [Suspect]
     Active Substance: INFLIXIMAB
     Dosage: 300 MILLIGRAM
     Route: 042
  7. INFLIXIMAB [Suspect]
     Active Substance: INFLIXIMAB
     Dosage: 300 MILLIGRAM
     Route: 042
  8. INFLIXIMAB [Suspect]
     Active Substance: INFLIXIMAB
     Dosage: 300 MILLIGRAM
     Route: 042
  9. INFLIXIMAB [Suspect]
     Active Substance: INFLIXIMAB
     Dosage: 300 MILLIGRAM
     Route: 042
  10. INFLIXIMAB [Suspect]
     Active Substance: INFLIXIMAB
     Dosage: 300 MILLIGRAM
     Route: 042
  11. INFLIXIMAB [Suspect]
     Active Substance: INFLIXIMAB
     Dosage: 300 MILLIGRAM
     Route: 042
  12. INFLIXIMAB [Suspect]
     Active Substance: INFLIXIMAB
     Dosage: 300 MILLIGRAM
     Route: 042
  13. INFLIXIMAB [Suspect]
     Active Substance: INFLIXIMAB
     Dosage: 300 MILLIGRAM
     Route: 042
  14. INFLIXIMAB [Suspect]
     Active Substance: INFLIXIMAB
     Dosage: 300 MILLIGRAM
     Route: 042
  15. INFLIXIMAB [Suspect]
     Active Substance: INFLIXIMAB
     Dosage: 300 MILLIGRAM
     Route: 042
  16. INFLIXIMAB [Suspect]
     Active Substance: INFLIXIMAB
     Dosage: 300 MILLIGRAM
     Route: 042
  17. INFLIXIMAB [Suspect]
     Active Substance: INFLIXIMAB
     Dosage: 300 MILLIGRAM
     Route: 042
  18. INFLIXIMAB [Suspect]
     Active Substance: INFLIXIMAB
     Dosage: 300 MILLIGRAM
     Route: 042
  19. INFLIXIMAB [Suspect]
     Active Substance: INFLIXIMAB
     Dosage: 300 MILLIGRAM
     Route: 042
  20. INFLIXIMAB [Suspect]
     Active Substance: INFLIXIMAB
     Dosage: 300 MILLIGRAM
     Route: 042
  21. INFLECTRA [Suspect]
     Active Substance: INFLIXIMAB-DYYB
     Indication: Crohn^s disease
     Dosage: 300 MG, WEEKS 0, 2, 6 THEN Q 8 WEEKS ON HOLD
     Route: 042
     Dates: start: 20220816
  22. INFLECTRA [Suspect]
     Active Substance: INFLIXIMAB-DYYB
     Dosage: 300 MG, WEEKS 0, 2, 6 THEN Q 8 WEEKS ON HOLD
     Route: 042
     Dates: start: 20220816
  23. INFLECTRA [Suspect]
     Active Substance: INFLIXIMAB-DYYB
     Dosage: 300 MG, WEEKS 0, 2, 6 THEN EVERY 8 WEEKS ON HOLD
     Route: 042
     Dates: start: 20220830, end: 20220830
  24. INFLECTRA [Suspect]
     Active Substance: INFLIXIMAB-DYYB
     Dosage: 300 MG, WEEKS 0, 2, 6 THEN EVERY 8 WEEKS
     Route: 042
     Dates: start: 20221128
  25. INFLECTRA [Suspect]
     Active Substance: INFLIXIMAB-DYYB
     Dosage: 200 MG, WEEKS 0, 2, 6 THEN Q 8 WEEKS
     Route: 042
     Dates: start: 20221128
  26. INFLECTRA [Suspect]
     Active Substance: INFLIXIMAB-DYYB
     Dosage: 200 MG, WEEKS 0, 2, 6 THEN Q 8 WEEKS
     Route: 042
     Dates: start: 20221214
  27. INFLECTRA [Suspect]
     Active Substance: INFLIXIMAB-DYYB
     Dosage: 200 MG, WEEKS 0, 2, 6 THEN Q 8 WEEKS
     Route: 042
     Dates: start: 20230111
  28. INFLECTRA [Suspect]
     Active Substance: INFLIXIMAB-DYYB
     Dosage: 300 MG, EVERY 8 WEEKS
     Route: 042
     Dates: start: 20230308
  29. INFLECTRA [Suspect]
     Active Substance: INFLIXIMAB-DYYB
     Dosage: 300 MG, EVERY 8 WEEKS
     Route: 042
     Dates: start: 20230628
  30. INFLECTRA [Suspect]
     Active Substance: INFLIXIMAB-DYYB
     Dosage: 300 MG, EVERY 6 WEEKS
     Route: 042
     Dates: start: 20230811
  31. INFLECTRA [Suspect]
     Active Substance: INFLIXIMAB-DYYB
     Dosage: 300 MG, EVERY 6 WEEKS
     Route: 042
     Dates: start: 20230922
  32. INFLECTRA [Suspect]
     Active Substance: INFLIXIMAB-DYYB
     Dosage: 300 MG, 7 WEEKS AND 5 DAYS
     Route: 042
     Dates: start: 20231115
  33. INFLECTRA [Suspect]
     Active Substance: INFLIXIMAB-DYYB
     Dosage: 300 MG, EVERY 6 WEEK
     Route: 042
     Dates: start: 20231227
  34. INFLECTRA [Suspect]
     Active Substance: INFLIXIMAB-DYYB
     Dosage: 300 MG, EVERY 6 WEEK
     Route: 042
     Dates: start: 20231227
  35. INFLECTRA [Suspect]
     Active Substance: INFLIXIMAB-DYYB
     Dosage: 300 MG, EVERY 6 WEEK
     Route: 042
     Dates: start: 20240207
  36. INFLECTRA [Suspect]
     Active Substance: INFLIXIMAB-DYYB
     Dosage: 300 MG, EVERY 6 WEEK
     Route: 042
     Dates: start: 20240320
  37. INFLECTRA [Suspect]
     Active Substance: INFLIXIMAB-DYYB
     Dosage: 300 MG, EVERY 6 WEEK
     Route: 042
     Dates: start: 20241017
  38. INFLECTRA [Suspect]
     Active Substance: INFLIXIMAB-DYYB
     Dosage: 300 MG, EVERY 6 WEEK
     Route: 042
     Dates: start: 20250207
  39. INFLECTRA [Suspect]
     Active Substance: INFLIXIMAB-DYYB
     Dosage: 300 MG AFTER 5 WEEKS AND 5 DAYS (300 MG, EVERY 6 WEEK)
     Route: 042
     Dates: start: 20250319
  40. INFLECTRA [Suspect]
     Active Substance: INFLIXIMAB-DYYB
     Dosage: 300 MG, 5 WEEKS 6 DAYS (EVERY 6 WEEKS)
     Route: 042
     Dates: start: 20250429
  41. DULOXETINE [Concomitant]
     Active Substance: DULOXETINE
     Dosage: UNK (ONLY TOOK IT ^FOR ABOUT 5 DAYS TOTAL^)
     Dates: start: 2025, end: 2025
  42. PREDNISONE [Concomitant]
     Active Substance: PREDNISONE
     Dosage: 1 DF
  43. SOLU-CORTEF [Concomitant]
     Active Substance: HYDROCORTISONE SODIUM SUCCINATE
     Indication: Premedication
     Dosage: 100 MG
     Dates: start: 20220830, end: 20220830
  44. DULOXETINE [Concomitant]
     Active Substance: DULOXETINE

REACTIONS (32)
  - Abdominal symptom [Not Recovered/Not Resolved]
  - Abdominal distension [Not Recovered/Not Resolved]
  - Peripheral swelling [Not Recovered/Not Resolved]
  - Ileostomy closure [Not Recovered/Not Resolved]
  - Blood potassium decreased [Not Recovered/Not Resolved]
  - Scar [Not Recovered/Not Resolved]
  - Post procedural discharge [Not Recovered/Not Resolved]
  - Weight decreased [Not Recovered/Not Resolved]
  - Uveitis [Not Recovered/Not Resolved]
  - Ocular hypertension [Not Recovered/Not Resolved]
  - Glaucoma [Not Recovered/Not Resolved]
  - Eye pain [Not Recovered/Not Resolved]
  - Condition aggravated [Not Recovered/Not Resolved]
  - Vomiting [Not Recovered/Not Resolved]
  - Blood pressure decreased [Not Recovered/Not Resolved]
  - Vomiting [Not Recovered/Not Resolved]
  - Muscle spasms [Not Recovered/Not Resolved]
  - Discomfort [Not Recovered/Not Resolved]
  - Asthenia [Not Recovered/Not Resolved]
  - Abdominal discomfort [Not Recovered/Not Resolved]
  - Vomiting [Not Recovered/Not Resolved]
  - Abdominal pain upper [Not Recovered/Not Resolved]
  - Abscess [Not Recovered/Not Resolved]
  - Hypoaesthesia [Not Recovered/Not Resolved]
  - Arthralgia [Not Recovered/Not Resolved]
  - Constipation [Not Recovered/Not Resolved]
  - Pain [Not Recovered/Not Resolved]
  - Drug level below therapeutic [Not Recovered/Not Resolved]
  - Off label use [Not Recovered/Not Resolved]
  - Off label use [Not Recovered/Not Resolved]
  - Overdose [Unknown]
  - Underdose [Unknown]

NARRATIVE: CASE EVENT DATE: 20220101
